FAERS Safety Report 6017830-5 (Version None)
Quarter: 2008Q4

REPORT INFORMATION
  Report Type: 
  Country: None (occurrence: None)
  Receive Date: 20081223
  Receipt Date: 20081211
  Transmission Date: 20090506
  Serious: Yes (Hospitalization)
  Sender: FDA-Public Use
  Company Number: GB-ROCHE-600018

PATIENT
  Sex: Male
  Weight: 97.4 kg

DRUGS (2)
  1. CAPECITABINE [Suspect]
     Dosage: STRENGTH AND FORM AS PER PROTOCOL; SECOND CYCLE; THERAPY INTERRUPTED; RECENT DOSE: 25 NOVEMBER 2008
     Route: 048
     Dates: start: 20081028
  2. CAPECITABINE [Suspect]
     Route: 048
     Dates: start: 20081209

REACTIONS (1)
  - INTESTINAL OBSTRUCTION [None]
